FAERS Safety Report 4591893-6 (Version None)
Quarter: 2005Q1

REPORT INFORMATION
  Report Type: 
  Country: None (occurrence: None)
  Receive Date: 20050222
  Receipt Date: 20050204
  Transmission Date: 20050727
  Serious: Yes (Other)
  Sender: FDA-Public Use
  Company Number: 8006825

PATIENT
  Age: 5 Year
  Sex: Female

DRUGS (6)
  1. KEPPRA [Suspect]
     Indication: CONVULSION PROPHYLAXIS
     Dosage: PO
     Route: 048
     Dates: end: 20040412
  2. KEPPRA [Suspect]
     Indication: CONVULSION PROPHYLAXIS
     Dosage: PO
     Route: 048
     Dates: start: 20040501
  3. CARBOPLATIN [Concomitant]
  4. THIOTEPA [Concomitant]
  5. ETOPOSIDE [Concomitant]
  6. PHENOBARBITAL [Concomitant]

REACTIONS (19)
  - ALANINE AMINOTRANSFERASE INCREASED [None]
  - ANOREXIA [None]
  - ASPARTATE AMINOTRANSFERASE INCREASED [None]
  - BLOOD BICARBONATE DECREASED [None]
  - BLOOD PRESSURE INCREASED [None]
  - BONE MARROW DEPRESSION [None]
  - CALCULUS BLADDER [None]
  - HYPOKALAEMIA [None]
  - HYPONATRAEMIA [None]
  - HYPOPHOSPHATAEMIA [None]
  - MUCOSAL INFLAMMATION [None]
  - NAUSEA [None]
  - NEUTROPENIA [None]
  - PYELONEPHRITIS [None]
  - PYREXIA [None]
  - RENAL DISORDER [None]
  - RENAL HAEMORRHAGE [None]
  - VASCULAR OCCLUSION [None]
  - VOMITING [None]
